FAERS Safety Report 5091983-8 (Version None)
Quarter: 2006Q3

REPORT INFORMATION
  Report Type: 
  Country: None (occurrence: None)
  Receive Date: 20060825
  Receipt Date: 20060809
  Transmission Date: 20061208
  Serious: Yes (Hospitalization, Other)
  Sender: FDA-Public Use
  Company Number: BE200607004028

PATIENT
  Age: 69 Year
  Sex: Male
  Weight: 62 kg

DRUGS (17)
  1. ALIMTA [Suspect]
     Dosage: DAY ONE
     Dates: start: 20060529
  2. ALIMTA [Suspect]
     Dosage: DAY ONE
     Dates: start: 20060710
  3. ALIMTA [Suspect]
     Dosage: DAY ONE
     Dates: start: 20060807
  4. OMEPRAZOLE [Concomitant]
  5. MEDROL ACETATE [Concomitant]
  6. FELDENE [Concomitant]
  7. FOLAVIT (FOLIC ACID) [Concomitant]
  8. AMITRIPTYLINE HCL [Concomitant]
  9. FENTANYL [Concomitant]
  10. MOVICOL (MACROGOL, POTASSIUM CHLORIDE, SODIUM BICARBONATE DO [Concomitant]
  11. AUGMENTIN '125' [Concomitant]
  12. AMLODIPINE BESYLATE [Concomitant]
  13. LITICAN (ALIZAPARID) [Concomitant]
  14. MORPHINE [Concomitant]
  15. TAZOCIN (PIPERACILLIN SODIUM, TAZOBACTAM SODIUM) [Concomitant]
  16. CYANOCOBALAMIN [Concomitant]
  17. VITRIMIX (AMINO ACIDS NOS, ELECTROLYTES NOS, GLUCOSE, GLYCEROL, LECITH [Concomitant]

REACTIONS (4)
  - DECUBITUS ULCER [None]
  - DEHYDRATION [None]
  - MUCOSAL INFLAMMATION [None]
  - NEUTROPENIA [None]
